FAERS Safety Report 5001072-6 (Version None)
Quarter: 2006Q2

REPORT INFORMATION
  Report Type: 
  Country: None (occurrence: None)
  Receive Date: 20060512
  Receipt Date: 20060302
  Transmission Date: 20061013
  Serious: Yes (Hospitalization)
  Sender: FDA-Public Use
  Company Number: NL-BRISTOL-MYERS SQUIBB COMPANY-13309836

PATIENT
  Age: 59 Year
  Sex: Female

DRUGS (4)
  1. ERBITUX [Suspect]
     Indication: NON-SMALL CELL LUNG CANCER
     Dosage: DELAYED ON 02-MAR-06, RESTARTED ON 03-MAR-2006.
     Route: 041
     Dates: start: 20060112
  2. CISPLATIN [Suspect]
     Indication: NON-SMALL CELL LUNG CANCER
     Route: 042
     Dates: start: 20060112
  3. VINORELBINE [Suspect]
     Indication: NON-SMALL CELL LUNG CANCER
     Dosage: DELAYED ON 02-MAR-06, RESTARTED ON 03-MAR-06.
     Route: 042
     Dates: start: 20060112
  4. TRAMADOL HCL [Suspect]
     Dates: start: 20060119, end: 20060302

REACTIONS (1)
  - DEHYDRATION [None]
